FAERS Safety Report 10258181 (Version 1)
Quarter: 2014Q2

REPORT INFORMATION
  Report Type: Spontaneous
  Country: US (occurrence: None)
  Receive Date: 20140623
  Receipt Date: 20140623
  Transmission Date: 20141212
  Serious: Yes (Hospitalization)
  Sender: FDA-Public Use
  Company Number: 14001456

PATIENT
  Age: 94 Year
  Sex: Female

DRUGS (6)
  1. KLOR-CON [Suspect]
     Indication: BLOOD POTASSIUM DECREASED
     Route: 048
     Dates: start: 201401, end: 201406
  2. NEURONTIN (GABAPENTIN) [Concomitant]
  3. ARICEPT (DONEPEZIL HYDRPOCHLORIDE) [Concomitant]
  4. SYNTHROID (LEVOTHYROXINE SOIUM) [Concomitant]
  5. MIRTAZAPINE (MIRTAZAPINE) [Concomitant]
  6. CLARITIN (LORATIDINE) [Concomitant]

REACTIONS (6)
  - Gastric ulcer [None]
  - Pneumonia aspiration [None]
  - Haematemesis [None]
  - Abdominal distension [None]
  - Breath odour [None]
  - White blood cell count increased [None]
